FAERS Safety Report 6710084-3 (Version None)
Quarter: 2010Q2

REPORT INFORMATION
  Report Type: 
  Country: None (occurrence: None)
  Receive Date: 20100430
  Receipt Date: 20100415
  Transmission Date: 20101027
  Serious: Yes (Other)
  Sender: FDA-Public Use
  Company Number: 1-22276141

PATIENT
  Age: 38 Year
  Sex: Female

DRUGS (1)
  1. OXCARBAZEPINE [Suspect]
     Indication: TRIGEMINAL NEURALGIA
     Dosage: 900 MG PER DAY, ORAL
     Route: 048

REACTIONS (7)
  - BRADYKINESIA [None]
  - COGWHEEL RIGIDITY [None]
  - GAIT DISTURBANCE [None]
  - MASKED FACIES [None]
  - POSTURE ABNORMAL [None]
  - SPEECH DISORDER [None]
  - TREMOR [None]
